FAERS Safety Report 9077158 (Version 1)
Quarter: 2013Q1

REPORT INFORMATION
  Report Type: Report from Study
  Country: US (occurrence: US)
  Receive Date: 20130129
  Receipt Date: 20130129
  Transmission Date: 20140127
  Serious: No
  Sender: FDA-Public Use
  Company Number: US-ABBOTT-12P-163-0945822-00

PATIENT
  Age: 63 Year
  Sex: Male

DRUGS (3)
  1. HUMIRA 40 MG/0.8 ML PEN [Suspect]
     Indication: PSORIATIC ARTHROPATHY
     Dates: start: 200409
  2. HYDROCODONE [Concomitant]
     Indication: PAIN
     Dosage: 50MG BY MOUTH DAILY
  3. DICLOFENAC [Concomitant]
     Indication: ANTICOAGULANT THERAPY
     Dosage: 75MG BY MOUTH DAILY

REACTIONS (6)
  - Device malfunction [Unknown]
  - Injection site pain [Recovered/Resolved]
  - Dermatitis psoriasiform [Recovered/Resolved]
  - Local swelling [Recovered/Resolved]
  - Pain in extremity [Not Recovered/Not Resolved]
  - Incorrect dose administered [Unknown]
